FAERS Safety Report 5519694-2 (Version None)
Quarter: 2007Q4

REPORT INFORMATION
  Report Type: 
  Country: None (occurrence: None)
  Receive Date: 20071116
  Receipt Date: 20071112
  Transmission Date: 20080405
  Serious: Yes (Other)
  Sender: FDA-Public Use
  Company Number: US-JNJFOC-20071104735

PATIENT
  Age: 55 Year

DRUGS (1)
  1. TOPAMAX [Suspect]
     Indication: HEADACHE

REACTIONS (5)
  - BRAIN STEM SYNDROME [None]
  - DIPLOPIA [None]
  - IMPAIRED WORK ABILITY [None]
  - MULTIPLE SCLEROSIS [None]
  - NYSTAGMUS [None]
